FAERS Safety Report 19675372 (Version 1)
Quarter: 2021Q3

REPORT INFORMATION
  Report Type: Spontaneous
  Country: DE (occurrence: DE)
  Receive Date: 20210809
  Receipt Date: 20210809
  Transmission Date: 20211014
  Serious: Yes (Hospitalization, Other)
  Sender: FDA-Public Use
  Company Number: DE-AUROBINDO-AUR-APL-2021-033878

PATIENT
  Age: 81 Year
  Sex: Male

DRUGS (2)
  1. LEVOTHYROXINE SODIUM. [Concomitant]
     Active Substance: LEVOTHYROXINE SODIUM
     Indication: PRODUCT USED FOR UNKNOWN INDICATION
     Dosage: 75 MICROGRAM, ONCE A DAY (1?0?0?0)
     Route: 048
  2. VALSARTAN FILM?COATED TABLET [Suspect]
     Active Substance: VALSARTAN
     Indication: PRODUCT USED FOR UNKNOWN INDICATION
     Dosage: 80 MILLIGRAM, ONCE A DAY (1?0?0?0)
     Route: 048

REACTIONS (1)
  - Anuria [Unknown]

NARRATIVE: CASE EVENT DATE: 20210518
